FAERS Safety Report 11886998 (Version 1)
Quarter: 2016Q1

REPORT INFORMATION
  Report Type: Spontaneous
  Country: US (occurrence: US)
  Receive Date: 20160104
  Receipt Date: 20160104
  Transmission Date: 20160526
  Serious: Yes (Hospitalization)
  Sender: FDA-Public Use
  Company Number: US-CELGENEUS-USA-2015126495

PATIENT
  Sex: Male

DRUGS (1)
  1. REVLIMID [Suspect]
     Active Substance: LENALIDOMIDE
     Indication: HEAD AND NECK CANCER
     Dosage: 15 MILLIGRAM
     Route: 048
     Dates: start: 201512

REACTIONS (5)
  - Full blood count decreased [Unknown]
  - White blood cell count increased [Unknown]
  - Muscle spasms [Unknown]
  - Atrial fibrillation [Unknown]
  - Pyrexia [Unknown]

NARRATIVE: CASE EVENT DATE: 2015
